FAERS Safety Report 11758719 (Version 2)
Quarter: 2015Q4

REPORT INFORMATION
  Report Type: Spontaneous
  Country: US (occurrence: None)
  Receive Date: 20151119
  Receipt Date: 20151119
  Transmission Date: 20160304
  Serious: Yes (Life-Threatening, Hospitalization)
  Sender: FDA-Public Use
  Company Number: None

PATIENT
  Age: 30 Year
  Sex: Male
  Weight: 90.72 kg

DRUGS (3)
  1. NEXIUM [Concomitant]
     Active Substance: ESOMEPRAZOLE MAGNESIUM
  2. CYMBALTA [Concomitant]
     Active Substance: DULOXETINE HYDROCHLORIDE
  3. ZONISAMIDE. [Suspect]
     Active Substance: ZONISAMIDE
     Indication: DRUG THERAPY
     Route: 048
     Dates: start: 20151023, end: 20151114

REACTIONS (7)
  - Product substitution issue [None]
  - Tongue injury [None]
  - Muscle strain [None]
  - Seizure [None]
  - Limb injury [None]
  - Back injury [None]
  - Drug effect decreased [None]

NARRATIVE: CASE EVENT DATE: 20151114
